FAERS Safety Report 17507968 (Version 4)
Quarter: 2025Q1

REPORT INFORMATION
  Report Type: Report from Study
  Country: US (occurrence: US)
  Receive Date: 20200306
  Receipt Date: 20250327
  Transmission Date: 20250409
  Serious: No
  Sender: TAKEDA
  Company Number: US-SHIRE-US202008572

PATIENT
  Age: 25 Year
  Sex: Female
  Weight: 77.551 kg

DRUGS (20)
  1. HUMAN IMMUNOGLOBULIN G\HYALURONIDASE RECOMBINANT HUMAN [Suspect]
     Active Substance: HUMAN IMMUNOGLOBULIN G\HYALURONIDASE (HUMAN RECOMBINANT)
     Indication: Immunodeficiency common variable
     Dosage: 35 GRAM, Q4WEEKS
     Dates: start: 20181219
  2. HUMAN IMMUNOGLOBULIN G\HYALURONIDASE RECOMBINANT HUMAN [Suspect]
     Active Substance: HUMAN IMMUNOGLOBULIN G\HYALURONIDASE (HUMAN RECOMBINANT)
     Dosage: 35 GRAM, Q4WEEKS
     Dates: start: 20190205
  3. ACETAMINOPHEN [Concomitant]
     Active Substance: ACETAMINOPHEN
     Indication: Product used for unknown indication
  4. SODIUM CHLORIDE [Concomitant]
     Active Substance: SODIUM CHLORIDE
     Indication: Product used for unknown indication
  5. EPINEPHRINE [Concomitant]
     Active Substance: EPINEPHRINE
     Indication: Product used for unknown indication
  6. SIROLIMUS [Concomitant]
     Active Substance: SIROLIMUS
     Indication: Product used for unknown indication
  7. ZOLOFT [Concomitant]
     Active Substance: SERTRALINE HYDROCHLORIDE
     Indication: Product used for unknown indication
  8. VITAMIN D3 [Concomitant]
     Active Substance: CHOLECALCIFEROL
     Indication: Product used for unknown indication
  9. VITAMIN B [Concomitant]
     Active Substance: VITAMIN B
  10. CORDRAN [Concomitant]
     Active Substance: FLURANDRENOLIDE
     Indication: Product used for unknown indication
  11. Omega [Concomitant]
     Indication: Product used for unknown indication
  12. AVEENO [Concomitant]
     Active Substance: DIMETHICONE\HOMOSALATE\OCTINOXATE\OCTISALATE\TITANIUM DIOXIDE
     Indication: Product used for unknown indication
     Dosage: UNK UNK, QD
  13. ASPIRIN [Concomitant]
     Active Substance: ASPIRIN
     Indication: Product used for unknown indication
  14. SPIRONOLACTONE [Concomitant]
     Active Substance: SPIRONOLACTONE
     Indication: Product used for unknown indication
  15. Lmx [Concomitant]
     Indication: Product used for unknown indication
  16. DIPHENHYDRAMINE HYDROCHLORIDE [Concomitant]
     Active Substance: DIPHENHYDRAMINE HYDROCHLORIDE
  17. TYLENOL EXTRA STRENGTH [Concomitant]
     Active Substance: ACETAMINOPHEN
  18. VITAMIN C [Concomitant]
     Active Substance: ASCORBIC ACID
     Indication: Product used for unknown indication
  19. KEPPRA [Concomitant]
     Active Substance: LEVETIRACETAM
     Indication: Product used for unknown indication
  20. SULFAMETHOXAZOLE\TRIMETHOPRIM [Concomitant]
     Active Substance: SULFAMETHOXAZOLE\TRIMETHOPRIM
     Indication: Product used for unknown indication

REACTIONS (13)
  - Nasopharyngitis [Unknown]
  - Ear infection [Unknown]
  - Heavy menstrual bleeding [Unknown]
  - Parotitis [Unknown]
  - Menstrual disorder [Unknown]
  - Gastroenteritis viral [Unknown]
  - Stress [Unknown]
  - Skin papilloma [Unknown]
  - Viral infection [Unknown]
  - COVID-19 [Recovered/Resolved]
  - Product dose omission issue [Unknown]
  - Eczema [Unknown]
  - Rash [Unknown]

NARRATIVE: CASE EVENT DATE: 20231201
